FAERS Safety Report 10263244 (Version 2)
Quarter: 2014Q2

REPORT INFORMATION
  Report Type: Report from Study
  Country: US (occurrence: US)
  Receive Date: 20140626
  Receipt Date: 20140626
  Transmission Date: 20141212
  Serious: Yes (Death)
  Sender: FDA-Public Use
  Company Number: US-MYLANLABS-2014S1010009

PATIENT
  Age: 77 Year
  Sex: Female

DRUGS (3)
  1. CLOZAPINE TABLETS [Suspect]
     Indication: HALLUCINATION
     Route: 048
     Dates: start: 2011, end: 201401
  2. PRISTIQ [Concomitant]
  3. KLONOPIN [Concomitant]

REACTIONS (1)
  - Hip fracture [Fatal]
